FAERS Safety Report 14444145 (Version 3)
Quarter: 2018Q2

REPORT INFORMATION
  Report Type: Spontaneous
  Country: US (occurrence: US)
  Receive Date: 20180125
  Receipt Date: 20180425
  Transmission Date: 20180711
  Serious: Yes (Hospitalization, Other)
  Sender: FDA-Public Use
  Company Number: US-ALEXION-A201800629

PATIENT
  Sex: Female

DRUGS (3)
  1. SOLIRIS [Suspect]
     Active Substance: ECULIZUMAB
     Dosage: UNK, QW
     Route: 065
  2. SOLIRIS [Suspect]
     Active Substance: ECULIZUMAB
     Dosage: UNK, TWICE A MONTH
     Route: 065
  3. SOLIRIS [Suspect]
     Active Substance: ECULIZUMAB
     Indication: ATYPICAL HAEMOLYTIC URAEMIC SYNDROME
     Dosage: UNK
     Route: 065

REACTIONS (13)
  - Laboratory test abnormal [Unknown]
  - Fatigue [Unknown]
  - Adverse event [Not Recovered/Not Resolved]
  - Headache [Not Recovered/Not Resolved]
  - Renal failure [Recovered/Resolved]
  - Liver function test abnormal [Unknown]
  - Inappropriate schedule of drug administration [Not Recovered/Not Resolved]
  - Migraine [Unknown]
  - Anaemia [Unknown]
  - Asthenia [Recovering/Resolving]
  - Pancreatitis [Unknown]
  - Splenomegaly [Unknown]
  - Autoimmune disorder [Unknown]
